FAERS Safety Report 4299467-1 (Version None)
Quarter: 2004Q1

REPORT INFORMATION
  Report Type: 
  Country: None (occurrence: None)
  Receive Date: 20040219
  Receipt Date: 20040213
  Transmission Date: 20041129
  Serious: Yes (Hospitalization)
  Sender: FDA-Public Use
  Company Number: PL-GLAXOSMITHKLINE-A0498074A

PATIENT
  Age: 68 Year
  Sex: Male

DRUGS (4)
  1. NAVELBINE [Suspect]
     Indication: PROSTATE CANCER
     Dosage: 60MGM2 SEE DOSAGE TEXT
     Route: 048
     Dates: start: 20031208
  2. HYDROCORTISONE [Suspect]
     Indication: PROSTATE CANCER METASTATIC
     Dosage: 40MG PER DAY
     Route: 048
     Dates: start: 20031208
  3. INSULIN MIXTARD [Concomitant]
     Dosage: 59UNIT PER DAY
     Route: 058
  4. ACARBOSE [Concomitant]
     Dosage: 150MG PER DAY
     Route: 048
     Dates: start: 19990101

REACTIONS (4)
  - ASTHENIA [None]
  - DIABETES MELLITUS INADEQUATE CONTROL [None]
  - HYPERGLYCAEMIA [None]
  - HYPOTHYROIDISM [None]
